FAERS Safety Report 7099060-1 (Version None)
Quarter: 2010Q4

REPORT INFORMATION
  Report Type: 
  Country: None (occurrence: None)
  Receive Date: 20101112
  Receipt Date: 20101103
  Transmission Date: 20110411
  Serious: Yes (Hospitalization)
  Sender: FDA-Public Use
  Company Number: IT-ASTRAZENECA-2010SE52388

PATIENT
  Age: 28861 Day
  Sex: Female

DRUGS (4)
  1. SEROQUEL [Suspect]
     Indication: DEPRESSION
     Route: 048
     Dates: start: 20100901, end: 20101023
  2. EXELON [Suspect]
     Indication: DEMENTIA ALZHEIMER'S TYPE
     Route: 062
     Dates: start: 20100923, end: 20101023
  3. EXELON [Suspect]
     Route: 048
     Dates: start: 20101024, end: 20101024
  4. EN [Suspect]
     Indication: PSYCHOMOTOR HYPERACTIVITY
     Route: 048
     Dates: start: 20100901, end: 20101023

REACTIONS (3)
  - HYPOAESTHESIA [None]
  - SOPOR [None]
  - VOMITING [None]
